FAERS Safety Report 5467852-8 (Version None)
Quarter: 2007Q3

REPORT INFORMATION
  Report Type: 
  Country: None (occurrence: None)
  Receive Date: 20070926
  Receipt Date: 20070917
  Transmission Date: 20080115
  Serious: Yes (Death, Other)
  Sender: FDA-Public Use
  Company Number: US-ELI_LILLY_AND_COMPANY-US200709003375

PATIENT
  Age: 33 Year
  Sex: Male

DRUGS (5)
  1. ZYPREXA [Suspect]
     Indication: SCHIZOPHRENIA
     Dosage: 10 MG, DAILY (1/D)
     Dates: start: 19960101
  2. ZYPREXA [Suspect]
     Dosage: 30 MG, DAILY (1/D)
     Dates: start: 20070101
  3. TOPAMAX [Concomitant]
  4. ZOLOFT [Concomitant]
  5. GEODON [Concomitant]

REACTIONS (4)
  - ACCIDENTAL OVERDOSE [None]
  - DEATH [None]
  - ELECTROCARDIOGRAM QT PROLONGED [None]
  - OVERDOSE [None]
